FAERS Safety Report 14873257 (Version 1)
Quarter: 2018Q2

REPORT INFORMATION
  Report Type: Spontaneous
  Country: US (occurrence: US)
  Receive Date: 20180510
  Receipt Date: 20180510
  Transmission Date: 20180711
  Serious: No
  Sender: FDA-Public Use
  Company Number: US-PFIZER INC-2018186646

PATIENT
  Age: 73 Year
  Sex: Female
  Weight: 77.55 kg

DRUGS (1)
  1. CHANTIX [Suspect]
     Active Substance: VARENICLINE TARTRATE
     Dosage: UNK

REACTIONS (6)
  - Grandiosity [Unknown]
  - Hypomania [Unknown]
  - Insomnia [Unknown]
  - Abnormal behaviour [Unknown]
  - Affective disorder [Unknown]
  - Speech disorder [Unknown]
